FAERS Safety Report 10812398 (Version 1)
Quarter: 2015Q1

REPORT INFORMATION
  Report Type: Spontaneous
  Country: US (occurrence: US)
  Receive Date: 20150218
  Receipt Date: 20150218
  Transmission Date: 20150721
  Serious: No
  Sender: FDA-Public Use
  Company Number: US-BRISTOL-MYERS SQUIBB COMPANY-BMS-2015-009928

PATIENT
  Sex: Male

DRUGS (3)
  1. ABILIFY [Suspect]
     Active Substance: ARIPIPRAZOLE
     Indication: PRODUCT USED FOR UNKNOWN INDICATION
     Dosage: 1 UNK
     Route: 048
  2. ABILIFY [Suspect]
     Active Substance: ARIPIPRAZOLE
     Dosage: 7.5 MG, UNK
     Route: 048
  3. ABILIFY [Suspect]
     Active Substance: ARIPIPRAZOLE
     Dosage: 15 UNK
     Route: 048

REACTIONS (1)
  - Wrong technique in drug usage process [Unknown]
